FAERS Safety Report 5052489-5 (Version None)
Quarter: 2006Q3

REPORT INFORMATION
  Report Type: 
  Country: None (occurrence: None)
  Receive Date: 20060712
  Receipt Date: 20060712
  Transmission Date: 20061208
  Serious: Yes (Hospitalization)
  Sender: FDA-Public Use
  Company Number: None

PATIENT
  Age: 53 Year
  Sex: Male

DRUGS (1)
  1. ZYRTEC [Suspect]

REACTIONS (3)
  - HYPERHIDROSIS [None]
  - PAIN IN EXTREMITY [None]
  - PALPITATIONS [None]
